FAERS Safety Report 10409463 (Version 1)
Quarter: 2014Q2

REPORT INFORMATION
  Report Type: Spontaneous
  Country: US (occurrence: None)
  Receive Date: 20140530
  Receipt Date: 20140530
  Transmission Date: 20141212
  Serious: No
  Sender: FDA-Public Use
  Company Number: 227215LEO

PATIENT
  Age: 57 Year
  Sex: Female

DRUGS (1)
  1. PICATO (INGENOL MEBUTATE) (0.015 %, GEL) [Suspect]
     Indication: ACTINIC KERATOSIS
     Dosage: (1D), DERMAL
     Dates: start: 20140415, end: 20140416

REACTIONS (8)
  - Application site swelling [None]
  - Swelling [None]
  - Application site erythema [None]
  - Application site pruritus [None]
  - Application site pruritus [None]
  - Application site scab [None]
  - Application site exfoliation [None]
  - Incorrect drug administration duration [None]
